FAERS Safety Report 8621557 (Version 3)
Quarter: 2013Q4

REPORT INFORMATION
  Report Type: Spontaneous
  Country: US (occurrence: US)
  Receive Date: 20120619
  Receipt Date: 20131002
  Transmission Date: 20140711
  Serious: Yes (Other)
  Sender: FDA-Public Use
  Company Number: US-PFIZER INC-2012140420

PATIENT
  Age: 79 Year
  Sex: Male
  Weight: 74.83 kg

DRUGS (6)
  1. CELEBREX [Suspect]
     Indication: ARTHRALGIA
     Dosage: 200 MG, DAILY
     Route: 048
  2. LYRICA [Suspect]
     Indication: ARTHRITIS
     Dosage: 50 MG, 3X/DAY
     Route: 048
  3. LYRICA [Suspect]
     Indication: BONE PAIN
     Dosage: 50 MG, 2X/DAY
     Route: 048
     Dates: end: 201208
  4. LYRICA [Suspect]
     Indication: BURNING SENSATION
  5. FUROSEMIDE [Concomitant]
     Indication: DIURETIC THERAPY
     Dosage: 50 MG, 3X/DAY
  6. XALATAN [Suspect]
     Dosage: UNK
     Route: 047

REACTIONS (6)
  - Visual acuity reduced [Unknown]
  - Hearing impaired [Unknown]
  - Ear disorder [Unknown]
  - Pain [Unknown]
  - Burning sensation [Not Recovered/Not Resolved]
  - Eye disorder [Unknown]
